FAERS Safety Report 6715577-0 (Version None)
Quarter: 2010Q2

REPORT INFORMATION
  Report Type: 
  Country: None (occurrence: None)
  Receive Date: 20100507
  Receipt Date: 20100428
  Transmission Date: 20101027
  Serious: Yes (Other)
  Sender: FDA-Public Use
  Company Number: PHHY2010US25653

PATIENT
  Sex: Female
  Weight: 154 kg

DRUGS (13)
  1. RECLAST [Suspect]
     Indication: OSTEOPOROSIS
     Dosage: 5 MG
     Route: 042
     Dates: start: 20090723
  2. LIPITOR [Suspect]
     Indication: BLOOD CHOLESTEROL
     Dosage: 10 MG DAILY
     Route: 048
  3. LIPITOR [Suspect]
     Indication: HYPERLIPIDAEMIA
  4. CALCIUM WITH VITAMIN D [Concomitant]
  5. ALEVE (CAPLET) [Concomitant]
  6. SIMVALTA [Concomitant]
     Indication: FIBROMYALGIA
  7. VALIUM [Concomitant]
     Indication: NERVOUSNESS
     Dosage: 5 MG
     Route: 048
  8. TRAMADOL [Concomitant]
     Indication: ARTHRALGIA
     Dosage: 500 MG, BID
  9. NAPROSYN [Concomitant]
     Indication: ARTHRALGIA
     Dosage: 500 MG, BID
     Route: 048
  10. CYMBALTA [Concomitant]
     Dosage: 30 MG
     Route: 048
  11. ZANAFLEX [Concomitant]
     Dosage: 4 MG
     Route: 048
  12. PERCOCET [Concomitant]
     Route: 048
  13. FISH OIL [Concomitant]
     Dosage: 1000 MG, BID
     Route: 048

REACTIONS (15)
  - ARTHRALGIA [None]
  - ASPARTATE AMINOTRANSFERASE INCREASED [None]
  - BLOOD UREA INCREASED [None]
  - BONE DISORDER [None]
  - FIBROMYALGIA [None]
  - HYPERCALCAEMIA [None]
  - JOINT STIFFNESS [None]
  - MENTAL DISORDER [None]
  - MUSCULAR WEAKNESS [None]
  - MUSCULOSKELETAL DISCOMFORT [None]
  - MYALGIA [None]
  - OEDEMA PERIPHERAL [None]
  - PAIN [None]
  - PAIN IN EXTREMITY [None]
  - PROTEIN TOTAL DECREASED [None]
